FAERS Safety Report 11624021 (Version 2)
Quarter: 2015Q4

REPORT INFORMATION
  Report Type: Spontaneous
  Country: US (occurrence: US)
  Receive Date: 20151013
  Receipt Date: 20151125
  Transmission Date: 20160304
  Serious: Yes (Disabling)
  Sender: FDA-Public Use
  Company Number: US-JNJFOC-20150912573

PATIENT
  Age: 19 Year
  Sex: Female

DRUGS (3)
  1. TENEX [Concomitant]
     Active Substance: GUANFACINE HYDROCHLORIDE
     Indication: ATTENTION DEFICIT/HYPERACTIVITY DISORDER
     Dates: start: 200911, end: 201509
  2. INVEGA [Suspect]
     Active Substance: PALIPERIDONE
     Indication: BIPOLAR II DISORDER
     Route: 048
  3. KLONOPIN [Concomitant]
     Active Substance: CLONAZEPAM
     Indication: BIPOLAR DISORDER
     Route: 065
     Dates: start: 201402, end: 201509

REACTIONS (4)
  - Product use issue [Unknown]
  - Adverse event [Unknown]
  - Tardive dyskinesia [Not Recovered/Not Resolved]
  - Off label use [Unknown]

NARRATIVE: CASE EVENT DATE: 20150910
